FAERS Safety Report 10455857 (Version 3)
Quarter: 2020Q4

REPORT INFORMATION
  Report Type: Other
  Country: NL (occurrence: NL)
  Receive Date: 20140916
  Receipt Date: 20201130
  Transmission Date: 20210113
  Serious: Yes (Other)
  Sender: FDA-Public Use
  Company Number: NL-ROCHE-1460326

PATIENT

DRUGS (2)
  1. CAPECITABINE. [Suspect]
     Active Substance: CAPECITABINE
     Indication: ANAL CANCER
     Route: 065
  2. MITOMYCIN. [Suspect]
     Active Substance: MITOMYCIN
     Indication: ANAL CANCER
     Dosage: ON DAY 1 MAXIMUM 15 MG
     Route: 040

REACTIONS (5)
  - Skin toxicity [Unknown]
  - Haematotoxicity [Unknown]
  - Radiation skin injury [Unknown]
  - Gastrointestinal toxicity [Unknown]
  - Toxicity to various agents [Unknown]
